FAERS Safety Report 5806436-6 (Version None)
Quarter: 2008Q3

REPORT INFORMATION
  Report Type: 
  Country: None (occurrence: None)
  Receive Date: 20080708
  Receipt Date: 20080626
  Transmission Date: 20090109
  Serious: Yes (Other)
  Sender: FDA-Public Use
  Company Number: 2008S1011154

PATIENT
  Age: 49 Year
  Sex: Female
  Weight: 86.1834 kg

DRUGS (7)
  1. LYRICA [Suspect]
     Indication: BACK PAIN
     Dosage: 50 MG; TWICE A DAY; ORAL
     Route: 048
     Dates: start: 20080606, end: 20080611
  2. LISINOPRIL AND HYDROCHLOROTHIAZIDE [Suspect]
     Dosage: ORAL
     Route: 048
  3. MONTELUKAST SODIUM [Concomitant]
  4. ALLEGRA [Concomitant]
  5. YASMIN [Concomitant]
  6. SIMVASTATIN [Concomitant]
  7. RITALIN [Concomitant]

REACTIONS (3)
  - ABASIA [None]
  - BLOOD POTASSIUM DECREASED [None]
  - HEADACHE [None]
